FAERS Safety Report 4847320-4 (Version None)
Quarter: 2005Q4

REPORT INFORMATION
  Report Type: 
  Country: None (occurrence: None)
  Receive Date: 20051205
  Receipt Date: 20051205
  Transmission Date: 20060501
  Serious: Yes (Hospitalization, Disabling)
  Sender: FDA-Public Use
  Company Number: None

PATIENT
  Sex: Female
  Weight: 56 kg

DRUGS (2)
  1. APROTININ [Suspect]
     Indication: HAEMORRHAGE
     Dosage: APPROXIMATELT 500 ML   CONTINOUS   IV DRIP
     Route: 041
  2. APROTININ [Suspect]
     Indication: PROPHYLAXIS
     Dosage: APPROXIMATELT 500 ML   CONTINOUS   IV DRIP
     Route: 041

REACTIONS (4)
  - HAEMODIALYSIS [None]
  - HAEMORRHAGE [None]
  - POST PROCEDURAL COMPLICATION [None]
  - RENAL FAILURE [None]
